FAERS Safety Report 23661254 (Version 1)
Quarter: 2024Q1

REPORT INFORMATION
  Report Type: Spontaneous
  Country: US (occurrence: US)
  Receive Date: 20240322
  Receipt Date: 20240322
  Transmission Date: 20240410
  Serious: Yes (Other)
  Sender: FDA-Public Use
  Company Number: US-ABBVIE-5682131

PATIENT
  Age: 94 Year
  Sex: Female

DRUGS (2)
  1. REFRESH TEARS [Suspect]
     Active Substance: CARBOXYMETHYLCELLULOSE SODIUM
     Indication: Dry eye
     Dosage: CMC 5MG/ML SOL UD
     Route: 047
     Dates: end: 20240314
  2. REFRESH PLUS [Suspect]
     Active Substance: CARBOXYMETHYLCELLULOSE SODIUM
     Indication: Dry eye
     Dosage: CMC 5MG/ML SOL
     Route: 047
     Dates: start: 20240315

REACTIONS (6)
  - Glaucoma [Unknown]
  - Grip strength decreased [Not Recovered/Not Resolved]
  - Vision blurred [Recovering/Resolving]
  - Wrong technique in product usage process [Not Recovered/Not Resolved]
  - Blindness unilateral [Unknown]
  - Musculoskeletal disorder [Not Recovered/Not Resolved]

NARRATIVE: CASE EVENT DATE: 20240311
